FAERS Safety Report 8057180-9 (Version None)
Quarter: 2012Q1

REPORT INFORMATION
  Report Type: 
  Country: None (occurrence: None)
  Receive Date: 20120119
  Receipt Date: 20120110
  Transmission Date: 20120608
  Serious: Yes (Hospitalization)
  Sender: FDA-Public Use
  Company Number: PHHY2012CR002284

PATIENT
  Age: 70 Year
  Sex: Female

DRUGS (5)
  1. LYRICA [Concomitant]
  2. SERTAL COMPUESTO [Concomitant]
  3. LANSOPRAZOLE [Concomitant]
  4. MOTILIUM [Concomitant]
  5. RASILEZ [Suspect]
     Indication: HYPERTENSION
     Dosage: 150 MG, PER DAY
     Route: 048

REACTIONS (8)
  - PANCREATITIS [None]
  - LIPASE INCREASED [None]
  - VOMITING [None]
  - NAUSEA [None]
  - ANAEMIA [None]
  - ABDOMINAL PAIN [None]
  - URINARY TRACT INFECTION [None]
  - HYPOKALAEMIA [None]
